FAERS Safety Report 4886783-5 (Version None)
Quarter: 2006Q1

REPORT INFORMATION
  Report Type: 
  Country: None (occurrence: None)
  Receive Date: 20060119
  Receipt Date: 20060119
  Transmission Date: 20060701
  Serious: Yes (Hospitalization)
  Sender: FDA-Public Use
  Company Number: None

PATIENT
  Age: 34 Year
  Sex: Female
  Weight: 71.7 kg

DRUGS (9)
  1. AMOXICILLIN [Suspect]
  2. ALBUTEROL SULFATE AUTOHALER [Concomitant]
  3. NICOTINE [Concomitant]
  4. SERTRALINE HCL [Concomitant]
  5. BUSPIRONE HCL [Concomitant]
  6. TRAZODONE HCL [Concomitant]
  7. CLONIDINE HCL [Concomitant]
  8. OMEPRAZOLE [Concomitant]
  9. PSYLLIUM SF [Concomitant]

REACTIONS (2)
  - PRURITUS [None]
  - RASH [None]
